FAERS Safety Report 16935442 (Version 1)
Quarter: 2019Q4

REPORT INFORMATION
  Report Type: Spontaneous
  Country: US (occurrence: US)
  Receive Date: 20191018
  Receipt Date: 20191018
  Transmission Date: 20200122
  Serious: No
  Sender: FDA-Public Use
  Company Number: US-SA-2019SA245157

PATIENT
  Age: 78 Year
  Sex: Female

DRUGS (3)
  1. ACITRETIN. [Concomitant]
     Active Substance: ACITRETIN
     Indication: PRURITUS
  2. DUPIXENT [Suspect]
     Active Substance: DUPILUMAB
     Indication: DERMATITIS ATOPIC
  3. DUPIXENT [Suspect]
     Active Substance: DUPILUMAB
     Indication: PRURITUS
     Dosage: 300 MG, QOW
     Route: 058
     Dates: start: 20190713

REACTIONS (1)
  - Urinary tract infection [Unknown]

NARRATIVE: CASE EVENT DATE: 20190729
